FAERS Safety Report 7676973-0 (Version None)
Quarter: 2011Q3

REPORT INFORMATION
  Report Type: 
  Country: None (occurrence: None)
  Receive Date: 20110811
  Receipt Date: 20110805
  Transmission Date: 20111222
  Serious: Yes (Hospitalization)
  Sender: FDA-Public Use
  Company Number: AU-SANOFI-AVENTIS-2011SA044509

PATIENT
  Age: 72 Year
  Sex: Male
  Weight: 110 kg

DRUGS (8)
  1. DRONEDARONE HCL [Suspect]
     Indication: ATRIAL FIBRILLATION
     Route: 048
     Dates: start: 20110602, end: 20110708
  2. ASPIRIN [Concomitant]
     Route: 065
  3. INSULIN [Concomitant]
     Route: 065
  4. WARFARIN [Concomitant]
     Route: 065
  5. VALSARTAN [Concomitant]
     Route: 065
  6. ROSUVASTATIN [Concomitant]
     Route: 065
  7. THIAZIDES [Concomitant]
     Route: 065
  8. BISOPROLOL FUMARATE [Concomitant]
     Route: 065

REACTIONS (2)
  - CARDIAC FAILURE [None]
  - ANGINA UNSTABLE [None]
